FAERS Safety Report 18363582 (Version 1)
Quarter: 2020Q4

REPORT INFORMATION
  Report Type: Spontaneous
  Country: PL (occurrence: PL)
  Receive Date: 20201009
  Receipt Date: 20201009
  Transmission Date: 20210114
  Serious: Yes (Other)
  Sender: FDA-Public Use
  Company Number: PL-TEVA-2020-PL-1836142

PATIENT
  Age: 18 Month

DRUGS (1)
  1. SUMAMED [Suspect]
     Active Substance: AZITHROMYCIN ANHYDROUS
     Route: 065
     Dates: start: 20180529

REACTIONS (2)
  - Rash [Unknown]
  - Asphyxia [Unknown]
